FAERS Safety Report 25939428 (Version 1)
Quarter: 2025Q4

REPORT INFORMATION
  Report Type: Spontaneous
  Country: US (occurrence: US)
  Receive Date: 20251020
  Receipt Date: 20251020
  Transmission Date: 20260117
  Serious: No
  Sender: LUPIN
  Company Number: US-LUPIN PHARMACEUTICALS INC.-2025-09351

PATIENT
  Age: 69 Year
  Weight: 63.492 kg

DRUGS (7)
  1. ALBUTEROL SULFATE [Suspect]
     Active Substance: ALBUTEROL SULFATE
     Indication: Lung neoplasm malignant
     Dosage: SOME DAYS MORE THAN PRESCRIBED, SOME DAYS OTHER THAN NOT
  2. ALBUTEROL SULFATE [Suspect]
     Active Substance: ALBUTEROL SULFATE
     Indication: Chronic obstructive pulmonary disease
     Dosage: SOME DAYS MORE THAN PRESCRIBED, SOME DAYS OTHER THAN NOT
  3. ALBUTEROL SULFATE [Suspect]
     Active Substance: ALBUTEROL SULFATE
     Dosage: SOME DAYS MORE THAN PRESCRIBED, SOME DAYS OTHER THAN NOT
  4. ALBUTEROL SULFATE [Suspect]
     Active Substance: ALBUTEROL SULFATE
     Dosage: SOME DAYS MORE THAN PRESCRIBED, SOME DAYS OTHER THAN NOT
  5. ALBUTEROL SULFATE [Suspect]
     Active Substance: ALBUTEROL SULFATE
     Dosage: SOME DAYS MORE THAN PRESCRIBED, SOME DAYS OTHER THAN NOT
  6. PREDNISONE [Concomitant]
     Active Substance: PREDNISONE
     Indication: Muscle spasms
     Dosage: 10 MG
     Route: 065
  7. TRAMADOL [Concomitant]
     Active Substance: TRAMADOL
     Indication: Pain
     Dosage: UNK
     Route: 065

REACTIONS (6)
  - Off label use [Unknown]
  - Product preparation error [Unknown]
  - Incorrect dose administered by device [Unknown]
  - Device deposit issue [Unknown]
  - Wrong technique in device usage process [Unknown]
  - Device delivery system issue [Unknown]
